FAERS Safety Report 4878396-6 (Version None)
Quarter: 2005Q4

REPORT INFORMATION
  Report Type: 
  Country: None (occurrence: None)
  Receive Date: 20051215
  Receipt Date: 20051010
  Transmission Date: 20060501
  Serious: Yes (Other)
  Sender: FDA-Public Use
  Company Number: US-JNJFOC-20050804969

PATIENT
  Age: 17 Year
  Sex: Female

DRUGS (1)
  1. ORTHO EVRA [Suspect]
     Dosage: TRANSDERMAL
     Route: 062
     Dates: start: 20030101

REACTIONS (1)
  - INTRACRANIAL VENOUS SINUS THROMBOSIS [None]
